FAERS Safety Report 7350389-9 (Version None)
Quarter: 2011Q1

REPORT INFORMATION
  Report Type: 
  Country: None (occurrence: None)
  Receive Date: 20110314
  Receipt Date: 20110309
  Transmission Date: 20110831
  Serious: Yes (Hospitalization)
  Sender: FDA-Public Use
  Company Number: US-BRISTOL-MYERS SQUIBB COMPANY-15588718

PATIENT
  Age: 64 Year
  Sex: Female
  Weight: 66 kg

DRUGS (8)
  1. BONIVA [Concomitant]
     Route: 048
     Dates: start: 20110105
  2. PROTONIX [Concomitant]
     Route: 048
  3. ADRIAMYCIN PFS [Suspect]
     Indication: BREAST CANCER
     Dosage: NO OF COURSES:3
     Dates: start: 20110112, end: 20110222
  4. PRINIVIL [Concomitant]
     Route: 048
  5. CYTOXAN [Suspect]
     Indication: BREAST CANCER
     Dosage: NO OF COURSES:3
     Dates: start: 20110112, end: 20110222
  6. ZOFRAN [Concomitant]
     Dates: start: 20110115
  7. OS-CAL + D [Concomitant]
     Dosage: OS CAL 500 + D 500MG 1DF=200 UNITS
     Route: 048
  8. FLONASE [Concomitant]
     Route: 045
     Dates: start: 20110101

REACTIONS (4)
  - DIARRHOEA [None]
  - DEHYDRATION [None]
  - NAUSEA [None]
  - VOMITING [None]
